FAERS Safety Report 7055462-0 (Version None)
Quarter: 2010Q4

REPORT INFORMATION
  Report Type: 
  Country: None (occurrence: None)
  Receive Date: 20101021
  Receipt Date: 20101014
  Transmission Date: 20110411
  Serious: Yes (Hospitalization)
  Sender: FDA-Public Use
  Company Number: NL-NAPPMUNDI-GBR-2010-0007174

PATIENT
  Sex: Female
  Weight: 50 kg

DRUGS (4)
  1. BUTRANS 5 MICROGRAM/UUR [Suspect]
     Indication: PAIN
     Dosage: 5 MCG, Q1H
     Route: 062
     Dates: start: 20101007
  2. SECTRAL [Concomitant]
     Indication: SICK SINUS SYNDROME
     Dosage: 200 UNK, UNK
     Route: 048
     Dates: start: 19940101
  3. ALENDRONIC ACID [Concomitant]
     Indication: OSTEOPOROSIS
     Dosage: 70 UNK, WEEKLY
     Route: 048
     Dates: start: 20010101
  4. MOVICOLON [Concomitant]
     Indication: CONSTIPATION
     Dosage: UNK
     Route: 048
     Dates: start: 20100909

REACTIONS (3)
  - DIZZINESS [None]
  - FALL [None]
  - FOOT FRACTURE [None]
